FAERS Safety Report 25602009 (Version 1)
Quarter: 2025Q3

REPORT INFORMATION
  Report Type: Spontaneous
  Country: KR (occurrence: KR)
  Receive Date: 20250724
  Receipt Date: 20250724
  Transmission Date: 20251020
  Serious: Yes (Other)
  Sender: WAYLIS THERAPEUTICS
  Company Number: KR-WAYLIS-2025-KR-000005

PATIENT
  Age: 64 Year
  Sex: Male

DRUGS (1)
  1. RABEPRAZOLE SODIUM [Suspect]
     Active Substance: RABEPRAZOLE SODIUM
     Indication: Drug hypersensitivity
     Route: 048
     Dates: start: 20240723, end: 20240723

REACTIONS (6)
  - Visual impairment [Unknown]
  - Syncope [Unknown]
  - Hypotension [Unknown]
  - Nausea [Unknown]
  - Vomiting [Unknown]
  - Headache [Unknown]

NARRATIVE: CASE EVENT DATE: 20240723
